FAERS Safety Report 4310899-5 (Version None)
Quarter: 2004Q1

REPORT INFORMATION
  Report Type: 
  Country: None (occurrence: None)
  Receive Date: 20040302
  Receipt Date: 20040224
  Transmission Date: 20041129
  Serious: Yes (Hospitalization)
  Sender: FDA-Public Use
  Company Number: 234197K03USA

PATIENT
  Age: 44 Year
  Sex: Female
  Weight: 128 kg

DRUGS (1)
  1. REBIF [Suspect]
     Indication: MULTIPLE SCLEROSIS
     Dosage: 22 MCG, 3 IN 1 WEEKS, SUBCUTANEOUS
     Route: 058
     Dates: start: 20030701

REACTIONS (6)
  - BACK INJURY [None]
  - FALL [None]
  - HEPATOMEGALY [None]
  - LIMB INJURY [None]
  - LIVER FUNCTION TEST ABNORMAL [None]
  - SYNCOPE [None]
